FAERS Safety Report 4385615-1 (Version None)
Quarter: 2004Q2

REPORT INFORMATION
  Report Type: 
  Country: None (occurrence: None)
  Receive Date: 20040628
  Receipt Date: 20040615
  Transmission Date: 20050107
  Serious: Yes (Life-Threatening, Hospitalization, Other)
  Sender: FDA-Public Use
  Company Number: PHEH2004US06560

PATIENT
  Age: 54 Year
  Sex: Female

DRUGS (18)
  1. ZELNORM [Suspect]
     Indication: IRRITABLE BOWEL SYNDROME
     Dosage: 6 MG, BID
     Route: 048
     Dates: start: 20040501, end: 20040601
  2. EFFEXOR XR [Suspect]
     Dosage: 75 MG, QD
     Dates: end: 20040519
  3. EFFEXOR XR [Suspect]
     Dosage: 75 MG/QAM, 150 MG/QHS
     Dates: start: 20040520
  4. MIRAPEX [Suspect]
     Dosage: 5 MG, QHS
  5. DURAGESIC [Suspect]
  6. NEURONTIN [Suspect]
  7. PANTOPRAZOLE [Concomitant]
  8. ADVAIR HFA [Concomitant]
  9. LIPITOR [Concomitant]
  10. FUROSEMIDE [Concomitant]
  11. LANTUS [Concomitant]
  12. PLAVIX [Concomitant]
  13. IMDUR [Concomitant]
  14. ALLEGRA [Concomitant]
  15. ATENOLOL [Concomitant]
  16. QUETIAPINE [Suspect]
     Dosage: 25 MG, BID
     Dates: start: 20040520
  17. SINEMET [Suspect]
     Indication: RESTLESS LEGS SYNDROME
     Dosage: UNK, TID
     Dates: start: 20040520
  18. MIRTAZAPINE [Suspect]

REACTIONS (29)
  - ABDOMINAL PAIN [None]
  - AGITATION [None]
  - AUTONOMIC NERVOUS SYSTEM IMBALANCE [None]
  - BLOOD CREATINE PHOSPHOKINASE INCREASED [None]
  - COMA [None]
  - ELECTROCARDIOGRAM ST SEGMENT ABNORMAL [None]
  - ELECTROMECHANICAL DISSOCIATION [None]
  - HEART INJURY [None]
  - HYPERTENSION [None]
  - HYPOTENSION [None]
  - HYPOXIA [None]
  - INTUBATION [None]
  - LEUKOCYTOSIS [None]
  - LUNG INFILTRATION [None]
  - MENTAL STATUS CHANGES [None]
  - METABOLIC ACIDOSIS [None]
  - MYOCARDIAL INFARCTION [None]
  - MYOCLONUS [None]
  - OPISTHOTONUS [None]
  - PNEUMONIA [None]
  - PNEUMONIA ASPIRATION [None]
  - PULMONARY OEDEMA [None]
  - RENAL FAILURE [None]
  - RENAL TUBULAR NECROSIS [None]
  - RESPIRATORY FAILURE [None]
  - RESTLESS LEGS SYNDROME [None]
  - RHABDOMYOLYSIS [None]
  - SEROTONIN SYNDROME [None]
  - TROPONIN INCREASED [None]
